FAERS Safety Report 18317218 (Version 1)
Quarter: 2020Q3

REPORT INFORMATION
  Report Type: Spontaneous
  Country: US (occurrence: US)
  Receive Date: 20200928
  Receipt Date: 20200928
  Transmission Date: 20201103
  Serious: Yes (Other)
  Sender: FDA-Public Use
  Company Number: US-SA-2020SA257658

PATIENT

DRUGS (3)
  1. TERIFLUNOMIDE. [Suspect]
     Active Substance: TERIFLUNOMIDE
     Dosage: 7 MG, QD
     Dates: start: 201812
  2. IBUPROFEN. [Suspect]
     Active Substance: IBUPROFEN
     Dosage: UNK
     Dates: end: 2018
  3. TERIFLUNOMIDE. [Suspect]
     Active Substance: TERIFLUNOMIDE
     Indication: RELAPSING-REMITTING MULTIPLE SCLEROSIS
     Dosage: 14 MG, QD
     Dates: start: 201801

REACTIONS (10)
  - Crohn^s disease [Recovering/Resolving]
  - Gastrointestinal disorder [Recovering/Resolving]
  - Duodenal ulcer [Recovering/Resolving]
  - Oesophagitis [Recovering/Resolving]
  - Diarrhoea [Recovering/Resolving]
  - Gastric ulcer [Recovering/Resolving]
  - Cryptitis [Recovering/Resolving]
  - Weight decreased [Recovering/Resolving]
  - Large intestinal ulcer [Recovering/Resolving]
  - Colitis [Recovering/Resolving]

NARRATIVE: CASE EVENT DATE: 2018
